FAERS Safety Report 5300726-1 (Version None)
Quarter: 2007Q2

REPORT INFORMATION
  Report Type: 
  Country: None (occurrence: None)
  Receive Date: 20070418
  Receipt Date: 20070409
  Transmission Date: 20071010
  Serious: Yes (Hospitalization, Other)
  Sender: FDA-Public Use
  Company Number: US-JNJFOC-20070303897

PATIENT
  Sex: Female
  Weight: 79.83 kg

DRUGS (8)
  1. REMICADE [Suspect]
     Route: 042
  2. REMICADE [Suspect]
     Route: 042
  3. REMICADE [Suspect]
     Indication: RHEUMATOID ARTHRITIS
     Route: 042
  4. VITAMIN B-12 [Concomitant]
     Route: 050
  5. ARAVA [Concomitant]
     Indication: RHEUMATOID ARTHRITIS
  6. ALEVE [Concomitant]
  7. ASCORBIC ACID [Concomitant]
  8. ARTHROTEC [Concomitant]

REACTIONS (5)
  - ACUTE MYOCARDIAL INFARCTION [None]
  - ADVERSE DRUG REACTION [None]
  - CONVULSION [None]
  - GASTROENTERITIS NORWALK VIRUS [None]
  - GUILLAIN-BARRE SYNDROME [None]
